FAERS Safety Report 5801569-2 (Version None)
Quarter: 2008Q2

REPORT INFORMATION
  Report Type: 
  Country: None (occurrence: None)
  Receive Date: 20080626
  Receipt Date: 20071112
  Transmission Date: 20081010
  Serious: Yes (Death)
  Sender: FDA-Public Use
  Company Number: 531363

PATIENT
  Age: 53 Year
  Sex: Female

DRUGS (1)
  1. XELODA [Suspect]
     Indication: BREAST CANCER
     Dosage: 1150 MG DAILY
     Dates: start: 20061101, end: 20071024

REACTIONS (2)
  - BREAST CANCER METASTATIC [None]
  - RASH [None]
